FAERS Safety Report 21439953 (Version 1)
Quarter: 2022Q4

REPORT INFORMATION
  Report Type: Spontaneous
  Country: US (occurrence: US)
  Receive Date: 20221011
  Receipt Date: 20221011
  Transmission Date: 20230113
  Serious: No
  Sender: FDA-Public Use
  Company Number: US-MORPHOSYS US-2022-MOR001952-US

PATIENT

DRUGS (2)
  1. MONJUVI [Suspect]
     Active Substance: TAFASITAMAB-CXIX
     Indication: Diffuse large B-cell lymphoma
     Dosage: 12 MILLIGRAM/KILOGRAM
     Route: 042
  2. REVLIMID [Concomitant]
     Active Substance: LENALIDOMIDE
     Indication: Diffuse large B-cell lymphoma
     Route: 048

REACTIONS (1)
  - Disease progression [Unknown]
